FAERS Safety Report 7244973-0 (Version None)
Quarter: 2011Q1

REPORT INFORMATION
  Report Type: 
  Country: None (occurrence: None)
  Receive Date: 20110126
  Receipt Date: 20110117
  Transmission Date: 20110831
  Serious: Yes (Death, Hospitalization, Other)
  Sender: FDA-Public Use
  Company Number: US-TEVA-263509USA

PATIENT
  Age: 44 Year
  Sex: Male

DRUGS (4)
  1. QUETIAPINE [Suspect]
  2. CLONAZEPAM [Suspect]
     Route: 048
  3. PAROXETINE HCL [Suspect]
  4. OLANZAPINE [Suspect]

REACTIONS (1)
  - HYPONATRAEMIA [None]
